FAERS Safety Report 18003209 (Version 2)
Quarter: 2020Q3

REPORT INFORMATION
  Report Type: Spontaneous
  Country: BR (occurrence: BR)
  Receive Date: 20200710
  Receipt Date: 20200813
  Transmission Date: 20201103
  Serious: Yes (Other)
  Sender: FDA-Public Use
  Company Number: BR-UCBSA-2020026503

PATIENT
  Age: 61 Year
  Sex: Female
  Weight: 74 kg

DRUGS (5)
  1. CIMZIA [Suspect]
     Active Substance: CERTOLIZUMAB PEGOL
     Indication: RHEUMATOID ARTHRITIS
     Dosage: 400 MILLIGRAM, EV 2 WEEKS(QOW)
     Route: 058
     Dates: start: 20200617
  2. PREDNISONA [Concomitant]
     Active Substance: PREDNISONE
     Indication: RHEUMATOID ARTHRITIS
     Dosage: 10 MILLIGRAM, ONCE DAILY (QD)
     Route: 048
     Dates: start: 2016
  3. LEFLUNOMIDA [Concomitant]
     Active Substance: LEFLUNOMIDE
     Indication: RHEUMATOID ARTHRITIS
     Dosage: 20 MILLIGRAM, ONCE DAILY (QD)
     Dates: start: 2016
  4. CLONAZEPAM. [Concomitant]
     Active Substance: CLONAZEPAM
     Indication: INSOMNIA
     Dosage: 15 DROP, ONCE DAILY (QD)
     Dates: start: 2016
  5. FLUOXETINA [FLUOXETINE] [Concomitant]
     Active Substance: FLUOXETINE HYDROCHLORIDE
     Indication: DEPRESSION
     Dosage: 40 MILLIGRAM, ONCE DAILY (QD)
     Dates: start: 2016, end: 20200623

REACTIONS (10)
  - Lip erythema [Recovering/Resolving]
  - Injection site irritation [Recovering/Resolving]
  - Off label use [Unknown]
  - Injection site swelling [Recovering/Resolving]
  - Wound [Recovering/Resolving]
  - Oral discomfort [Not Recovered/Not Resolved]
  - Pruritus [Recovering/Resolving]
  - Pain [Recovering/Resolving]
  - Pharyngeal mass [Recovering/Resolving]
  - Headache [Recovering/Resolving]

NARRATIVE: CASE EVENT DATE: 20200617
